FAERS Safety Report 17932251 (Version 1)
Quarter: 2020Q2

REPORT INFORMATION
  Report Type: Spontaneous
  Country: IN (occurrence: IN)
  Receive Date: 20200624
  Receipt Date: 20200624
  Transmission Date: 20200714
  Serious: Yes (Death, Hospitalization, Other)
  Sender: FDA-Public Use
  Company Number: IN-BRISTOL-MYERS SQUIBB COMPANY-BMS-2020-049505

PATIENT
  Age: 75 Year
  Sex: Male
  Weight: 100 kg

DRUGS (1)
  1. NIVOLUMAB [Suspect]
     Active Substance: NIVOLUMAB
     Indication: MALIGNANT MELANOMA
     Dosage: 300 MILLIGRAM (3 MG/KG  BODY WT)
     Route: 065
     Dates: start: 20200530

REACTIONS (6)
  - Cardiac arrest [Fatal]
  - Adrenocortical insufficiency acute [Unknown]
  - Acidosis [Unknown]
  - Hypotension [Unknown]
  - Hyperkalaemia [Unknown]
  - Inappropriate antidiuretic hormone secretion [Unknown]

NARRATIVE: CASE EVENT DATE: 20200608
